FAERS Safety Report 21358412 (Version 4)
Quarter: 2023Q1

REPORT INFORMATION
  Report Type: Report from Study
  Country: US (occurrence: US)
  Receive Date: 20220921
  Receipt Date: 20230110
  Transmission Date: 20230418
  Serious: No
  Sender: FDA-Public Use
  Company Number: US-NOVARTISTESTPH-NVSC2022US211131

PATIENT
  Sex: Female

DRUGS (1)
  1. KESIMPTA [Suspect]
     Active Substance: OFATUMUMAB
     Indication: Multiple sclerosis
     Dosage: 20 MG, QMO
     Route: 058

REACTIONS (5)
  - Dysmenorrhoea [Recovered/Resolved]
  - Intermenstrual bleeding [Not Recovered/Not Resolved]
  - Depression [Recovering/Resolving]
  - Fatigue [Recovering/Resolving]
  - Weight increased [Recovering/Resolving]
